FAERS Safety Report 22885291 (Version 4)
Quarter: 2024Q3

REPORT INFORMATION
  Report Type: Report from Study
  Country: US (occurrence: US)
  Receive Date: 20230831
  Receipt Date: 20240711
  Transmission Date: 20241017
  Serious: Yes (Death, Hospitalization)
  Sender: ABBVIE
  Company Number: US-ABBVIE-5388174

PATIENT
  Sex: Male

DRUGS (20)
  1. VENCLEXTA [Suspect]
     Active Substance: VENETOCLAX
     Indication: Myelodysplastic syndrome with excess blasts
     Dosage: FORM STRENGTH: 100 MILLIGRAM. ?TAKE 2 TABLETS (200 MG TOTAL) BY MOUTH DAILY FOR 14 DOSES. TAKE WI...
     Route: 048
     Dates: start: 20240215
  2. ALLOPURINOL [Concomitant]
     Active Substance: ALLOPURINOL
     Indication: Product used for unknown indication
     Dosage: DISPENSE: 90 TABLET ?REFILLS: 0, DURATION: 30 DAYS ALLOW SUBSTITUTION
     Route: 048
  3. EPINEPHRINE [Concomitant]
     Active Substance: EPINEPHRINE
     Indication: Hypersensitivity
     Dosage: EPINEPHRINE 1M 1 MG/ML-(1 ML) SOLUTION 0.3 MG IM ONCE AS NEEDED?FOR HYPERSENSITIVITY REACTION. IN...
     Route: 030
  4. HYDROXYUREA [Concomitant]
     Active Substance: HYDROXYUREA
     Indication: Product used for unknown indication
     Dosage: ORAL 500 MG CAPSULE?2 CAPSULE ORALLY DALLY.?DISPENSE: 60 CAP REFILLS: 2?DURATION: 60 DAYS
     Route: 048
  5. ACETAMINOPHEN [Concomitant]
     Active Substance: ACETAMINOPHEN
     Indication: Product used for unknown indication
     Dosage: ORAL 500 MG TABLET PRN
     Route: 048
  6. ANORO ELLIPTA [Concomitant]
     Active Substance: UMECLIDINIUM BROMIDE\VILANTEROL TRIFENATATE
     Indication: Product used for unknown indication
     Dosage: (UMECLIDINIUM AND VILANTEROL INHALER 62.5 MCG-25 MCG/ ACTUATION) 62.5-25 MCG/ ACTUATION BLISTER W...
     Route: 055
  7. MINERALS\VITAMINS [Concomitant]
     Active Substance: MINERALS\VITAMINS
     Indication: Product used for unknown indication
     Dosage: ORAL TABLET QD
     Route: 048
  8. SIMVASTATIN [Concomitant]
     Active Substance: SIMVASTATIN
     Indication: Product used for unknown indication
     Route: 048
  9. AZACITIDINE [Concomitant]
     Active Substance: AZACITIDINE
     Indication: Myelodysplastic syndrome with excess blasts
     Dosage: D1-5 Q28D CYCLE 28 NUMBER CYCLES: 7 START: C1D1 10/24/2022?ASSOC DX: MDS-EB-2 - LOT: 1ST LINE STA...
     Route: 058
     Dates: start: 20221024
  10. AZACITIDINE [Concomitant]
     Active Substance: AZACITIDINE
     Indication: Myelodysplastic syndrome with excess blasts
     Route: 058
  11. ONDANSETRON [Concomitant]
     Active Substance: ONDANSETRON
     Indication: Product used for unknown indication
     Route: 048
  12. ONDANSETRON [Concomitant]
     Active Substance: ONDANSETRON
     Indication: Product used for unknown indication
     Route: 048
  13. DEXAMETHASONE [Concomitant]
     Active Substance: DEXAMETHASONE
     Indication: Product used for unknown indication
     Dosage: 8 MG ORALLY ONCE.?INSTRUCTIONS: ADMINISTER 30-60 MINUTES PRIOR TO CHEMOTHERAPY.
     Route: 048
  14. DEXAMETHASONE [Concomitant]
     Active Substance: DEXAMETHASONE
     Indication: Product used for unknown indication
     Route: 048
  15. DIPHENHYDRAMINE [Concomitant]
     Active Substance: DIPHENHYDRAMINE
     Indication: Hypersensitivity
     Dosage: 50 MG INTRAVENOUSLY AS NEEDED FOR HYPERSENSITIVITY REACTION. INSTRUCTIONS: RE-INITIATE TREATMENT ...
     Route: 042
  16. FAMOTIDINE [Concomitant]
     Active Substance: FAMOTIDINE
     Indication: Hypersensitivity
     Dosage: 10 MG/ML SOLUTION. 20MG INTRAVENOUSLY AS NEEDED FOR HYPERSENSITIVITY?REACTION. INSTRUCTIONS: REIN...
     Route: 042
  17. HYDROCORTISONE [Concomitant]
     Active Substance: HYDROCORTISONE\HYDROCORTISONE ACETATE
     Indication: Hypersensitivity
     Dosage: INTRAVENOUSLY AS NEEDED FOR HYPERSENSITIVITY REACTION. INSTRUCTIONS: REINITIATE?TREATMENT ONLY UP...
     Route: 042
  18. METHYLPREDNISOLONE [Concomitant]
     Active Substance: METHYLPREDNISOLONE
     Indication: Hypersensitivity
     Dosage: INTRAVENOUSLY AS NEEDED FOR HYPERSENSITIVITY REACTION. INSTRUCTIONS: REINITIATE TREATMENT ONLY UP...
     Route: 042
  19. EPOETIN ALFA [Concomitant]
     Active Substance: ERYTHROPOIETIN
     Indication: Myelodysplastic syndrome with excess blasts
     Dosage: Q7D (CKD) LENGTH: 7 NUMBER CYCLES: 30 START: C1D1 ON 10/24/2022 ASSOC DX: MDS-EB-2
     Dates: start: 20221024
  20. RETACRIT [Concomitant]
     Active Substance: EPOETIN ALFA-EPBX
     Indication: Product used for unknown indication
     Dosage: 4000 UNIT
     Route: 058

REACTIONS (3)
  - Death [Fatal]
  - Off label use [Unknown]
  - Chemotherapy [Unknown]

NARRATIVE: CASE EVENT DATE: 20240101
